FAERS Safety Report 12664473 (Version 1)
Quarter: 2016Q3

REPORT INFORMATION
  Report Type: Spontaneous
  Country: US (occurrence: US)
  Receive Date: 20160818
  Receipt Date: 20160818
  Transmission Date: 20161109
  Serious: No
  Sender: FDA-Public Use
  Company Number: US-PFIZER INC-2016385591

PATIENT
  Age: 69 Year
  Sex: Female
  Weight: 59.7 kg

DRUGS (9)
  1. LISINOPRIL. [Concomitant]
     Active Substance: LISINOPRIL
     Dosage: 1 DF, DAILY
     Route: 048
  2. MIRTAZAPINE. [Concomitant]
     Active Substance: MIRTAZAPINE
     Dosage: 15 MG, 1X/DAY (BEDTIME)
     Route: 048
  3. SERTRALINE [Concomitant]
     Active Substance: SERTRALINE HYDROCHLORIDE
     Dosage: UNK
  4. DEXAMETHASONE. [Concomitant]
     Active Substance: DEXAMETHASONE
     Dosage: 4 MG, 2X/DAY
     Route: 048
  5. SERTRALINE HCL [Concomitant]
     Active Substance: SERTRALINE HYDROCHLORIDE
     Dosage: 1 DF, DAILY
     Route: 048
  6. ONDANSETRON [Concomitant]
     Active Substance: ONDANSETRON
     Dosage: 8 MG, AS NEEDED (Q 8 HOURS)
     Route: 048
  7. IBRANCE [Suspect]
     Active Substance: PALBOCICLIB
     Indication: BREAST CANCER FEMALE
     Dosage: 100 MG, CYCLIC (DAILY FOR 21 OUT OF 28 DAYS)
     Route: 048
     Dates: start: 20160728
  8. SILVER SULFADIAZINE. [Concomitant]
     Active Substance: SILVER SULFADIAZINE
     Dosage: UNK ((1 %) CREAM TOPICAL TAKE AS DIRECTED)
     Route: 061
  9. HYDROCODONE/ACETAMINOPHEN [Concomitant]
     Active Substance: ACETAMINOPHEN\HYDROCODONE
     Dosage: UNK, AS NEEDED (HYDROCODONE BITARTRATE-10MG, PARACETAMOL-325MG, Q 6 HOURS)
     Route: 048

REACTIONS (11)
  - Depression [Unknown]
  - Cough [Unknown]
  - Insomnia [Unknown]
  - Constipation [Unknown]
  - Headache [Unknown]
  - Musculoskeletal discomfort [Unknown]
  - Night sweats [Unknown]
  - Decreased appetite [Unknown]
  - Disease progression [Unknown]
  - Breast cancer female [Unknown]
  - Fatigue [Unknown]

NARRATIVE: CASE EVENT DATE: 201607
